FAERS Safety Report 5680856-5 (Version None)
Quarter: 2008Q1

REPORT INFORMATION
  Report Type: 
  Country: None (occurrence: None)
  Receive Date: 20080325
  Receipt Date: 20080312
  Transmission Date: 20080703
  Serious: Yes (Hospitalization)
  Sender: FDA-Public Use
  Company Number: GXBR2008US00747

PATIENT
  Sex: Female

DRUGS (1)
  1. CITALOPRAM HYDROBROMIDE [Suspect]
     Dosage: 20 MG, QD, ORAL
     Route: 048

REACTIONS (10)
  - ABASIA [None]
  - APHASIA [None]
  - ASTHENIA [None]
  - BALANCE DISORDER [None]
  - COORDINATION ABNORMAL [None]
  - DIPLEGIA [None]
  - EYELID PTOSIS [None]
  - FACIAL SPASM [None]
  - MUSCULAR WEAKNESS [None]
  - TREMOR [None]
